FAERS Safety Report 4401930-7 (Version None)
Quarter: 2004Q3

REPORT INFORMATION
  Report Type: 
  Country: None (occurrence: None)
  Receive Date: 20040719
  Receipt Date: 20040719
  Transmission Date: 20050211
  Serious: No
  Sender: FDA-Public Use
  Company Number: None

PATIENT
  Age: 31 Year
  Sex: Male

DRUGS (2)
  1. CLOMIPRAMINE HCL [Suspect]
     Dosage: CAPSULES - ONE EVERY OTHER DAY
  2. CLOMID [Suspect]

REACTIONS (1)
  - MEDICATION ERROR [None]
